FAERS Safety Report 8566741 (Version 3)
Quarter: 2012Q4

REPORT INFORMATION
  Report Type: 
  Country: GB (occurrence: GB)
  Receive Date: 20120517
  Receipt Date: 20120913
  Transmission Date: 20130627
  Serious: Yes (Hospitalization)
  Sender: FDA-Public Use
  Company Number: GB-ROCHE-1067541

PATIENT
  Age: 73 Year
  Sex: Male

DRUGS (2)
  1. NAPROSYN [Suspect]
     Indication: ARTHRITIS
     Route: 048
     Dates: start: 20120401, end: 20120422
  2. NAPROSYN [Suspect]
     Indication: PROCEDURAL PAIN

REACTIONS (8)
  - Abdominal pain [Unknown]
  - Dizziness [Unknown]
  - Small intestinal haemorrhage [Recovering/Resolving]
  - Duodenal ulcer [Unknown]
  - Dizziness [Unknown]
  - Lethargy [Unknown]
  - Pallor [Unknown]
  - Faeces discoloured [Unknown]
